FAERS Safety Report 17404954 (Version 2)
Quarter: 2020Q1

REPORT INFORMATION
  Report Type: Spontaneous
  Country: CA (occurrence: CA)
  Receive Date: 20200211
  Receipt Date: 20200302
  Transmission Date: 20200409
  Serious: Yes (Life-Threatening, Hospitalization)
  Sender: FDA-Public Use
  Company Number: CA-TEVA-2020-CA-1182849

PATIENT
  Age: 61 Year
  Sex: Male

DRUGS (4)
  1. OMEPRAZOLE. [Concomitant]
     Active Substance: OMEPRAZOLE
     Dosage: 20 MILLIGRAM DAILY;
     Route: 065
  2. TRIAMTERENE/HYDROCHLOROTHIAZID [Concomitant]
     Dosage: 1 DOSAGE FORMS DAILY;
     Route: 065
  3. EVEROLIMUS. [Interacting]
     Active Substance: EVEROLIMUS
     Indication: METASTATIC RENAL CELL CARCINOMA
     Dosage: SECOND-LINE THERAPY
     Route: 065
  4. RAMIPRIL. [Suspect]
     Active Substance: RAMIPRIL
     Indication: ANGIOTENSIN CONVERTING ENZYME
     Dosage: 10 MILLIGRAM DAILY;
     Route: 065

REACTIONS (2)
  - Tongue oedema [Recovered/Resolved]
  - Drug interaction [Recovered/Resolved]
